FAERS Safety Report 9969176 (Version 2)
Quarter: 2014Q1

REPORT INFORMATION
  Report Type: Report from Study
  Country: US (occurrence: US)
  Receive Date: 20140306
  Receipt Date: 20140306
  Transmission Date: 20141002
  Serious: Yes (Hospitalization)
  Sender: FDA-Public Use
  Company Number: US-MERCK-1311USA009960

PATIENT
  Age: 65 Year
  Sex: Female

DRUGS (4)
  1. VORINOSTAT [Suspect]
     Indication: GLIOBLASTOMA
     Dosage: CYCLE 3 D1
     Route: 048
     Dates: end: 20131111
  2. AVASTIN (BEVACIZUMAB) [Suspect]
     Indication: GLIOBLASTOMA
     Dosage: UNK
     Route: 042
     Dates: end: 20131105
  3. KEPPRA [Concomitant]
     Dosage: 1500 MG, BID
     Route: 048
  4. METFORMIN [Concomitant]
     Dosage: 100 MG, QD
     Route: 048

REACTIONS (1)
  - Convulsion [Unknown]
